FAERS Safety Report 9734077 (Version 2)
Quarter: 2014Q1

REPORT INFORMATION
  Report Type: Spontaneous
  Country: GB (occurrence: GB)
  Receive Date: 20131205
  Receipt Date: 20140325
  Transmission Date: 20141002
  Serious: Yes (Hospitalization)
  Sender: FDA-Public Use
  Company Number: GB-ACTAVIS-2013-22290

PATIENT
  Age: 65 Year
  Sex: Female
  Weight: 67 kg

DRUGS (4)
  1. IRINOTECAN (UNKNOWN) [Suspect]
     Indication: CHEMOTHERAPY
     Dosage: 306 MG, UNKNOWN
     Route: 065
     Dates: start: 20131107, end: 20131107
  2. FOLINIC ACID [Concomitant]
     Indication: CHEMOTHERAPY
     Dosage: UNK
     Route: 065
  3. FLUOROURACIL [Concomitant]
     Indication: CHEMOTHERAPY
     Dosage: UNK
     Route: 065
  4. OXALIPLATIN [Concomitant]
     Indication: CHEMOTHERAPY
     Dosage: UNK
     Route: 065

REACTIONS (3)
  - Paraesthesia [Recovered/Resolved]
  - Hypoaesthesia oral [Recovered/Resolved]
  - Dizziness [Recovered/Resolved]
